FAERS Safety Report 8214400-5 (Version None)
Quarter: 2012Q1

REPORT INFORMATION
  Report Type: 
  Country: None (occurrence: None)
  Receive Date: 20120227
  Receipt Date: 20111214
  Transmission Date: 20120608
  Serious: No
  Sender: FDA-Public Use
  Company Number: 341434

PATIENT
  Age: 67 Year
  Sex: Female

DRUGS (10)
  1. GLIPIZIDE [Concomitant]
  2. LANTUS [Concomitant]
  3. METFORMIN HCL [Concomitant]
  4. HYDROCHLOROTHIAZIDE [Concomitant]
  5. WELLBUTRIN [Concomitant]
  6. LEXAPRO [Concomitant]
  7. VICTOZA [Suspect]
     Indication: TYPE 2 DIABETES MELLITUS
     Dosage: 0.6 MG, QD, SUBCUTANEOUS, 1.2 MG, QD, SUBCUTANEOUS
     Route: 058
     Dates: start: 20111001
  8. SIMVASTATIN [Concomitant]
  9. NOVOLOG [Concomitant]
  10. LUNESTA [Concomitant]

REACTIONS (5)
  - RASH PRURITIC [None]
  - DIARRHOEA [None]
  - SKIN REACTION [None]
  - RASH ERYTHEMATOUS [None]
  - FURUNCLE [None]
